FAERS Safety Report 7106171-0 (Version None)
Quarter: 2010Q4

REPORT INFORMATION
  Report Type: 
  Country: None (occurrence: None)
  Receive Date: 20101116
  Receipt Date: 20101111
  Transmission Date: 20110411
  Serious: Yes (Other)
  Sender: FDA-Public Use
  Company Number: GXKR2010DE12672

PATIENT
  Sex: Female
  Weight: 68 kg

DRUGS (3)
  1. OFLOHEXAL (NGX) [Suspect]
     Indication: RESTLESSNESS
     Dosage: 200 MG, BID
     Route: 048
  2. METOPROLOL SUCCINATE [Concomitant]
     Dosage: 95 MG, UNK
     Route: 048
  3. ENALAPRIL ^STADA^ [Concomitant]
     Dosage: 5 MG, UNK
     Route: 048

REACTIONS (3)
  - HALLUCINATION [None]
  - HYPERHIDROSIS [None]
  - INSOMNIA [None]
